FAERS Safety Report 6525341-3 (Version None)
Quarter: 2010Q1

REPORT INFORMATION
  Report Type: 
  Country: None (occurrence: None)
  Receive Date: 20100104
  Receipt Date: 20091228
  Transmission Date: 20100710
  Serious: Yes (Other)
  Sender: FDA-Public Use
  Company Number: US-BAYER-200941703NA

PATIENT
  Age: 36 Year
  Sex: Female

DRUGS (9)
  1. YAZ [Suspect]
     Indication: CONTRACEPTION
     Route: 048
     Dates: end: 20090301
  2. XANAX [Concomitant]
  3. CELEXA [Concomitant]
  4. DIFLUCAN [Concomitant]
  5. BUSPIRONE HCL [Concomitant]
  6. AMBIEN [Concomitant]
  7. MACROBID [Concomitant]
  8. FIORICET [Concomitant]
  9. SYNTHROID [Concomitant]

REACTIONS (1)
  - CHOLECYSTECTOMY [None]
